FAERS Safety Report 9866444 (Version 1)
Quarter: 2014Q1

REPORT INFORMATION
  Report Type: Spontaneous
  Country: CA (occurrence: CA)
  Receive Date: 20140204
  Receipt Date: 20140204
  Transmission Date: 20141002
  Serious: Yes (Other)
  Sender: FDA-Public Use
  Company Number: CA-ROCHE-1343438

PATIENT
  Sex: Female

DRUGS (6)
  1. XOLAIR [Suspect]
     Indication: ASTHMA
     Route: 065
     Dates: start: 20120719
  2. REACTINE (CANADA) [Concomitant]
  3. ADVAIR [Concomitant]
  4. SPIRIVA [Concomitant]
  5. SINGULAIR [Concomitant]
  6. VENTOLIN [Concomitant]

REACTIONS (2)
  - Weight decreased [Unknown]
  - Ovarian cancer [Unknown]
